FAERS Safety Report 4662955-X (Version None)
Quarter: 2005Q2

REPORT INFORMATION
  Report Type: 
  Country: None (occurrence: None)
  Receive Date: 20050513
  Receipt Date: 20050429
  Transmission Date: 20051028
  Serious: Yes (Other)
  Sender: FDA-Public Use
  Company Number: L05-AUS-01420-01

PATIENT
  Age: 52 Year
  Sex: Male

DRUGS (5)
  1. PROPRANOLOL [Suspect]
     Indication: PORTAL HYPERTENSION
  2. PROPRANOLOL [Suspect]
     Indication: VARICES OESOPHAGEAL
  3. PEGYLATED INTERFERON-ALPHA-2A (PEGINTERFERON ALFA-2A) [Suspect]
     Indication: HEPATITIS CHRONIC ACTIVE
  4. RIBAVIRIN [Suspect]
     Indication: HEPATITIS CHRONIC ACTIVE
  5. GRANULOCYTE COLONY-STIMULATING FACTOR (GRANULOCYTE COLONY-STIMULATING [Suspect]
     Indication: LEUKOPENIA

REACTIONS (13)
  - DEPRESSED MOOD [None]
  - DERMATITIS PSORIASIFORM [None]
  - DRUG ERUPTION [None]
  - DRUG INEFFECTIVE [None]
  - DRUG INTERACTION POTENTIATION [None]
  - ECZEMA [None]
  - IRRITABILITY [None]
  - LETHARGY [None]
  - LEUKOPENIA [None]
  - LICHEN PLANUS [None]
  - LICHENOID KERATOSIS [None]
  - POST INFLAMMATORY PIGMENTATION CHANGE [None]
  - THERAPY NON-RESPONDER [None]
